FAERS Safety Report 9787809 (Version 3)
Quarter: 2014Q1

REPORT INFORMATION
  Report Type: Spontaneous
  Country: US (occurrence: US)
  Receive Date: 20131230
  Receipt Date: 20140327
  Transmission Date: 20141002
  Serious: No
  Sender: FDA-Public Use
  Company Number: US-PFIZER INC-2013367947

PATIENT
  Age: 58 Year
  Sex: Male

DRUGS (10)
  1. INLYTA [Suspect]
     Indication: RENAL CANCER METASTATIC
     Dosage: 5 MG, 2X/DAY (EVERY 12 HOURS)
     Dates: start: 20130913
  2. INLYTA [Suspect]
     Dosage: 7 MG, 2X/DAY
     Route: 048
     Dates: start: 20131211
  3. HYDROCHLOROTHIAZIDE [Concomitant]
     Dosage: 25 MG, DAILY
     Route: 048
  4. POTASSIUM [Concomitant]
     Dosage: 10 MEQ, DAILY
     Route: 048
  5. AMLODIPINE [Concomitant]
     Dosage: 10 MG, DAILY
     Route: 048
     Dates: start: 201306
  6. ATORVASTATIN [Concomitant]
     Dosage: 10 MG, DAILY
     Route: 048
  7. PREGABALIN [Concomitant]
     Dosage: UNK
     Dates: start: 201311
  8. MEGESTROL ACETATE [Concomitant]
     Dosage: 20 ML, DAILY
     Route: 048
     Dates: start: 20111109
  9. NORCO [Concomitant]
     Indication: PAIN
     Dosage: HYDROCODONE BITARTRATE 10MG /PARACETAMOL 325 MG Q4 HRS PRN (EVERY 4 HOURS AS NEEDED)
  10. IBUPROFEN [Concomitant]
     Indication: PAIN
     Dosage: 800 MG, Q8 HRS PRN (EVERY 8 HOURS AS NEEDED)
     Route: 048

REACTIONS (2)
  - Blister [Unknown]
  - Rash pruritic [Recovered/Resolved]
